FAERS Safety Report 8476990-7 (Version None)
Quarter: 2012Q2

REPORT INFORMATION
  Report Type: 
  Country: None (occurrence: None)
  Receive Date: 20120629
  Receipt Date: 20120620
  Transmission Date: 20120825
  Serious: No
  Sender: FDA-Public Use
  Company Number: US-BIOGENIDEC-2012BI022001

PATIENT
  Sex: Male

DRUGS (5)
  1. AVONEX [Suspect]
     Indication: MULTIPLE SCLEROSIS
     Route: 030
     Dates: start: 20120310
  2. GABAPENTIN [Concomitant]
     Indication: PAIN IN EXTREMITY
     Route: 048
  3. CLONAZEPAM [Concomitant]
     Indication: TREMOR
  4. BACLOFEN [Concomitant]
     Indication: PAIN IN EXTREMITY
     Route: 048
  5. CYMBALTA [Concomitant]
     Indication: DEPRESSION

REACTIONS (8)
  - SUICIDAL IDEATION [None]
  - MENTAL DISORDER [None]
  - FALL [None]
  - TREMOR [None]
  - LETHARGY [None]
  - MOOD SWINGS [None]
  - DEPRESSION [None]
  - GAIT DISTURBANCE [None]
